FAERS Safety Report 21434210 (Version 1)
Quarter: 2022Q4

REPORT INFORMATION
  Report Type: Spontaneous
  Country: IN (occurrence: IN)
  Receive Date: 20221010
  Receipt Date: 20221010
  Transmission Date: 20230112
  Serious: Yes (Congenital Anomaly, Other)
  Sender: FDA-Public Use
  Company Number: IN-MLMSERVICE-20220325-3449118-1

PATIENT
  Sex: Male

DRUGS (5)
  1. OLANZAPINE [Suspect]
     Active Substance: OLANZAPINE
     Dosage: UNK
     Route: 064
  2. CALCIUM [Suspect]
     Active Substance: CALCIUM
     Dosage: UNK
     Route: 064
  3. IRON [Suspect]
     Active Substance: IRON
     Dosage: UNK
     Route: 064
  4. FOLIC ACID [Suspect]
     Active Substance: FOLIC ACID
     Dosage: UNK
     Route: 064
  5. TETANUS TOXOIDS [Suspect]
     Active Substance: TETANUS TOXOIDS
     Dosage: UNK
     Route: 064

REACTIONS (4)
  - Talipes [Unknown]
  - Foetal exposure during pregnancy [Unknown]
  - Exposure via breast milk [Unknown]
  - Sedation [Unknown]
